FAERS Safety Report 9494479 (Version 2)
Quarter: 2013Q3

REPORT INFORMATION
  Report Type: Spontaneous
  Country: FR (occurrence: None)
  Receive Date: 20130828
  Receipt Date: 20130911
  Transmission Date: 20140515
  Serious: Yes (Hospitalization, Disabling)
  Sender: FDA-Public Use
  Company Number: ACET20130025

PATIENT
  Age: 13 Year
  Sex: Female

DRUGS (1)
  1. Q-PAP [Suspect]
     Indication: INTENTIONAL OVERDOSE

REACTIONS (5)
  - Renal failure acute [None]
  - Hepatic failure [None]
  - Hepatocellular injury [None]
  - Toxicity to various agents [None]
  - Intentional overdose [None]
